FAERS Safety Report 9105801 (Version 1)
Quarter: 2013Q1

REPORT INFORMATION
  Report Type: Spontaneous
  Country: US (occurrence: US)
  Receive Date: 20130221
  Receipt Date: 20130221
  Transmission Date: 20140127
  Serious: Yes (Other)
  Sender: FDA-Public Use
  Company Number: US-VIIV HEALTHCARE LIMITED-B0869330A

PATIENT
  Age: 40 Year
  Sex: Female

DRUGS (5)
  1. LAMIVUDINE-HIV [Suspect]
     Indication: HIV INFECTION
     Route: 065
  2. TENOFOVIR DISOPROXIL FUMARATE [Suspect]
     Indication: HIV INFECTION
     Route: 065
  3. LOPINAVIR + RITONAVIR [Suspect]
     Indication: HIV INFECTION
     Route: 065
  4. FOSAMPRENAVIR [Suspect]
     Indication: HIV INFECTION
     Route: 065
  5. ENFUVIRTIDE [Suspect]
     Indication: HIV INFECTION
     Route: 065

REACTIONS (2)
  - Basedow^s disease [Recovered/Resolved]
  - Immune reconstitution inflammatory syndrome [Recovered/Resolved]
